FAERS Safety Report 21109847 (Version 1)
Quarter: 2022Q3

REPORT INFORMATION
  Report Type: Spontaneous
  Country: US (occurrence: None)
  Receive Date: 20220720
  Receipt Date: 20220720
  Transmission Date: 20221027
  Serious: No
  Sender: FDA-Public Use
  Company Number: None

PATIENT
  Sex: Male

DRUGS (1)
  1. OTEZLA [Suspect]
     Active Substance: APREMILAST
     Indication: Psoriasis
     Dosage: FREQUENCY : TWICE A DAY;?
     Route: 048
     Dates: start: 202203

REACTIONS (6)
  - Drug ineffective [None]
  - Pruritus [None]
  - Burning sensation [None]
  - Diarrhoea [None]
  - Product dose omission issue [None]
  - Therapy interrupted [None]
